FAERS Safety Report 4397055-X (Version None)
Quarter: 2004Q3

REPORT INFORMATION
  Report Type: 
  Country: None (occurrence: None)
  Receive Date: 20040708
  Receipt Date: 20040705
  Transmission Date: 20050211
  Serious: Yes (Life-Threatening)
  Sender: FDA-Public Use
  Company Number: 200410206BVD

PATIENT
  Age: 35 Year
  Sex: Male
  Weight: 100 kg

DRUGS (2)
  1. ASPIRIN [Suspect]
     Indication: PYREXIA
     Dosage: ORAL
     Route: 048
     Dates: start: 20031201
  2. SURGAM (TIAPROFENIC ACID) [Suspect]
     Indication: PAIN
     Dosage: ORAL
     Route: 048
     Dates: start: 20031114, end: 20031128

REACTIONS (8)
  - AGRANULOCYTOSIS [None]
  - DRUG TOXICITY [None]
  - HAEMODIALYSIS [None]
  - PNEUMONIA PNEUMOCOCCAL [None]
  - PYREXIA [None]
  - RENAL FAILURE ACUTE [None]
  - SEPSIS [None]
  - SHOCK [None]
